FAERS Safety Report 8019723-0 (Version None)
Quarter: 2012Q1

REPORT INFORMATION
  Report Type: 
  Country: None (occurrence: None)
  Receive Date: 20120103
  Receipt Date: 20111222
  Transmission Date: 20120608
  Serious: Yes (Hospitalization)
  Sender: FDA-Public Use
  Company Number: JP-GLAXOSMITHKLINE-B0762781A

PATIENT
  Sex: Female

DRUGS (2)
  1. LAMICTAL [Suspect]
     Indication: BIPOLAR I DISORDER
     Route: 048
     Dates: start: 20111028, end: 20111113
  2. VALPROATE SODIUM [Suspect]
     Indication: BIPOLAR I DISORDER
     Dosage: 1000MG PER DAY
     Route: 048
     Dates: start: 20080110, end: 20111115

REACTIONS (18)
  - RASH MACULAR [None]
  - BLISTER [None]
  - ALANINE AMINOTRANSFERASE INCREASED [None]
  - SKIN EROSION [None]
  - C-REACTIVE PROTEIN INCREASED [None]
  - EPIDERMAL NECROSIS [None]
  - SCAB [None]
  - LYMPHOCYTE PERCENTAGE DECREASED [None]
  - ERYTHEMA [None]
  - NEUTROPHIL PERCENTAGE INCREASED [None]
  - TOXIC EPIDERMAL NECROLYSIS [None]
  - PYREXIA [None]
  - EYE DISCHARGE [None]
  - ORAL MUCOSA EROSION [None]
  - MUCOSAL EROSION [None]
  - LIP EROSION [None]
  - MONOCYTE PERCENTAGE ABNORMAL [None]
  - VULVAL ULCERATION [None]
